FAERS Safety Report 4578606-9 (Version None)
Quarter: 2005Q1

REPORT INFORMATION
  Report Type: 
  Country: None (occurrence: None)
  Receive Date: 20050207
  Receipt Date: 20050207
  Transmission Date: 20050727
  Serious: Yes (Hospitalization)
  Sender: FDA-Public Use
  Company Number: None

PATIENT
  Age: 50 Year
  Sex: Male

DRUGS (2)
  1. QUETIAPINE [Suspect]
     Indication: DEPRESSION
     Dosage: PO
     Route: 048
  2. QUETIAPINE [Suspect]
     Indication: TARDIVE DYSKINESIA
     Dosage: PO
     Route: 048

REACTIONS (1)
  - TARDIVE DYSKINESIA [None]
